FAERS Safety Report 7190145-8 (Version None)
Quarter: 2010Q4

REPORT INFORMATION
  Report Type: 
  Country: None (occurrence: None)
  Receive Date: 20101223
  Receipt Date: 20101217
  Transmission Date: 20110411
  Serious: Yes (Hospitalization)
  Sender: FDA-Public Use
  Company Number: JP-BRISTOL-MYERS SQUIBB COMPANY-15214992

PATIENT
  Age: 29 Year
  Sex: Female
  Weight: 49 kg

DRUGS (3)
  1. ABILIFY [Suspect]
     Indication: SCHIZOPHRENIA
     Dosage: ABILIFY TABS 6MG  INTERRUPTED ON 24NOV10
     Route: 048
     Dates: start: 20090610
  2. ABILIFY [Suspect]
     Indication: SCHIZOPHRENIA
     Dosage: RESUMED ON 29NOV10 30MG/DAY WITH LIQUID
     Route: 048
     Dates: start: 20101129
  3. UTEMERIN [Concomitant]
     Dosage: UTEMERIN TAB
     Dates: start: 20100922

REACTIONS (4)
  - DRUG EXPOSURE VIA BREAST MILK [None]
  - NORMAL NEWBORN [None]
  - PREGNANCY [None]
  - SCHIZOPHRENIA [None]
